FAERS Safety Report 5241237-1 (Version None)
Quarter: 2007Q1

REPORT INFORMATION
  Report Type: 
  Country: None (occurrence: None)
  Receive Date: 20070212
  Receipt Date: 20070212
  Transmission Date: 20070707
  Serious: Yes (Other)
  Sender: FDA-Public Use
  Company Number: None

PATIENT
  Sex: Male
  Weight: 79.3795 kg

DRUGS (2)
  1. CHANTIX [Suspect]
     Indication: SMOKING CESSATION THERAPY
     Dosage: 1MG BID PO
     Route: 048
     Dates: start: 20061222, end: 20070209
  2. ZOLOFT [Suspect]
     Indication: DEPRESSION
     Dosage: 100MG 1/2 DAILY PO
     Route: 048
     Dates: start: 20070202, end: 20070204

REACTIONS (4)
  - DYSPHONIA [None]
  - MUSCLE RIGIDITY [None]
  - SOMNOLENCE [None]
  - TREMOR [None]
